FAERS Safety Report 15685184 (Version 1)
Quarter: 2018Q4

REPORT INFORMATION
  Report Type: Spontaneous
  Country: US (occurrence: US)
  Receive Date: 20181204
  Receipt Date: 20181204
  Transmission Date: 20190205
  Serious: Yes (Hospitalization, Other)
  Sender: FDA-Public Use
  Company Number: US-COOPERSURGICAL, INC.-US-2018CPS033825

PATIENT

DRUGS (2)
  1. PARAGARD T 380A [Suspect]
     Active Substance: COPPER
     Indication: CONTRACEPTION
     Dosage: UNK
     Route: 015
     Dates: start: 20180207, end: 20181120
  2. MULTIVITAMIN                       /00097801/ [Concomitant]
     Active Substance: VITAMINS
     Indication: SUPPLEMENTATION THERAPY
     Route: 065

REACTIONS (17)
  - Vaginal discharge [Recovered/Resolved]
  - Vaginal odour [Unknown]
  - Bacterial vaginosis [Unknown]
  - Mycoplasma infection [Unknown]
  - Chlamydial infection [Unknown]
  - Hydrometra [Unknown]
  - Device expulsion [Recovered/Resolved]
  - Cervical dysplasia [Unknown]
  - Coital bleeding [Unknown]
  - Vulvovaginal discomfort [Unknown]
  - Dyspareunia [Unknown]
  - Ovarian cyst [Unknown]
  - Pelvic inflammatory disease [Unknown]
  - Vulvovaginal pruritus [Unknown]
  - Ureaplasma infection [Unknown]
  - Urinary tract infection [Unknown]
  - Pelvic pain [Recovered/Resolved]

NARRATIVE: CASE EVENT DATE: 201803
